FAERS Safety Report 9236192 (Version 1)
Quarter: 2013Q2

REPORT INFORMATION
  Report Type: Spontaneous
  Country: US (occurrence: US)
  Receive Date: 20130417
  Receipt Date: 20130417
  Transmission Date: 20140414
  Serious: Yes (Other)
  Sender: FDA-Public Use
  Company Number: US-PFIZER INC-2013119006

PATIENT
  Sex: Female

DRUGS (2)
  1. CHANTIX [Suspect]
     Dosage: UNK
  2. CHANTIX [Interacting]
     Dosage: UNK
     Dates: start: 2013

REACTIONS (2)
  - Drug interaction [Not Recovered/Not Resolved]
  - Blood urine present [Not Recovered/Not Resolved]
